FAERS Safety Report 15129856 (Version 1)
Quarter: 2018Q3

REPORT INFORMATION
  Report Type: Spontaneous
  Country: PL (occurrence: PL)
  Receive Date: 20180711
  Receipt Date: 20180711
  Transmission Date: 20181010
  Serious: Yes (Other)
  Sender: FDA-Public Use
  Company Number: PL-RICON PHARMA, LLC-RIC201807-000668

PATIENT
  Age: 78 Year
  Sex: Male

DRUGS (3)
  1. AMIODARONE [Concomitant]
     Active Substance: AMIODARONE
  2. LIDOCAINE. [Suspect]
     Active Substance: LIDOCAINE
  3. LIDOCAINE. [Suspect]
     Active Substance: LIDOCAINE

REACTIONS (2)
  - Horner^s syndrome [Unknown]
  - Neurological symptom [Unknown]
